FAERS Safety Report 8431597-2 (Version None)
Quarter: 2012Q2

REPORT INFORMATION
  Report Type: 
  Country: None (occurrence: None)
  Receive Date: 20120613
  Receipt Date: 20120530
  Transmission Date: 20120825
  Serious: Yes (Hospitalization)
  Sender: FDA-Public Use
  Company Number: CA-JNJFOC-20120521492

PATIENT
  Sex: Male
  Weight: 86.18 kg

DRUGS (6)
  1. CIPROFLOXACIN HCL [Concomitant]
     Indication: CROHN'S DISEASE
     Route: 048
     Dates: start: 19940101
  2. CALCIUM [Concomitant]
     Indication: OSTEOPOROSIS
     Route: 048
     Dates: start: 20040101
  3. REMICADE [Suspect]
     Indication: CROHN'S DISEASE
     Route: 042
  4. GRAVOL TAB [Suspect]
     Indication: PRODUCT USED FOR UNKNOWN INDICATION
     Route: 030
  5. FLAGYL [Concomitant]
     Indication: CROHN'S DISEASE
     Route: 048
     Dates: start: 19940101
  6. PREVACID [Concomitant]
     Indication: ANTACID THERAPY
     Route: 048
     Dates: start: 19940101

REACTIONS (2)
  - SHUNT THROMBOSIS [None]
  - HAEMATOMA [None]
